FAERS Safety Report 9008017 (Version 3)
Quarter: 2014Q4

REPORT INFORMATION
  Report Type: Spontaneous
  Country: US (occurrence: US)
  Receive Date: 20130111
  Receipt Date: 20141030
  Transmission Date: 20150529
  Serious: Yes (Hospitalization, Other)
  Sender: FDA-Public Use
  Company Number: US-BAYER-2013-002850

PATIENT
  Age: 38 Year
  Sex: Female
  Weight: 73.92 kg

DRUGS (10)
  1. YAZ [Suspect]
     Active Substance: DROSPIRENONE\ETHINYL ESTRADIOL
     Dosage: UNK
     Dates: start: 2010, end: 2011
  2. NAPROXEN. [Concomitant]
     Active Substance: NAPROXEN
  3. NAPROSYN [Concomitant]
     Active Substance: NAPROXEN
  4. COMBIVENT [Concomitant]
     Active Substance: ALBUTEROL SULFATE\IPRATROPIUM BROMIDE
  5. SIMVASTATIN. [Concomitant]
     Active Substance: SIMVASTATIN
  6. TOPROL XL [Concomitant]
     Active Substance: METOPROLOL SUCCINATE
  7. LISINOPRIL. [Concomitant]
     Active Substance: LISINOPRIL
  8. ATENOLOL. [Concomitant]
     Active Substance: ATENOLOL
  9. PREDNISONE. [Concomitant]
     Active Substance: PREDNISONE
  10. PHENTERMINE [Concomitant]
     Active Substance: PHENTERMINE

REACTIONS (8)
  - Pulmonary embolism [None]
  - Intracardiac thrombus [None]
  - Deep vein thrombosis [Recovered/Resolved]
  - Pain [None]
  - Cholecystectomy [None]
  - Coronary artery occlusion [None]
  - Injury [None]
  - Anxiety [None]

NARRATIVE: CASE EVENT DATE: 201101
